FAERS Safety Report 7243243-4 (Version None)
Quarter: 2011Q1

REPORT INFORMATION
  Report Type: 
  Country: None (occurrence: None)
  Receive Date: 20110125
  Receipt Date: 20110111
  Transmission Date: 20110831
  Serious: Yes (Hospitalization, Other)
  Sender: FDA-Public Use
  Company Number: US-ROCHE-744005

PATIENT
  Sex: Female
  Weight: 76.2 kg

DRUGS (7)
  1. ACCUTANE [Suspect]
     Dosage: ON HOLD
     Route: 048
     Dates: start: 20081015, end: 20081120
  2. TYLENOL-500 [Concomitant]
     Indication: PAIN
     Dates: start: 20060401
  3. ACCUTANE [Suspect]
     Indication: ACNE
     Dosage: ENROLLED IN STUDY IPLEDGE
     Route: 048
     Dates: start: 20080820
  4. ORTHO TRI-CYCLEN [Concomitant]
     Route: 048
     Dates: start: 19990430
  5. TRINESSA [Concomitant]
     Route: 048
     Dates: start: 20081223
  6. ACCUTANE [Suspect]
     Route: 048
     Dates: start: 20081123, end: 20081201
  7. IMODIUM MULTI-SYMPTOM RELIEF [Concomitant]

REACTIONS (7)
  - INJURY [None]
  - LYMPHOCYTE COUNT DECREASED [None]
  - INFLAMMATORY BOWEL DISEASE [None]
  - EMOTIONAL DISTRESS [None]
  - CROHN'S DISEASE [None]
  - SMALL INTESTINAL OBSTRUCTION [None]
  - LEUKOCYTOSIS [None]
